FAERS Safety Report 10419622 (Version 1)
Quarter: 2014Q2

REPORT INFORMATION
  Report Type: Spontaneous
  Country: US (occurrence: None)
  Receive Date: 20140625
  Receipt Date: 20140625
  Transmission Date: 20141212
  Serious: No
  Sender: FDA-Public Use
  Company Number: A-NJ2014-94089

PATIENT
  Age: 69 Year
  Sex: Female

DRUGS (2)
  1. OPSUMIT (MACITENTAN) [Suspect]
     Indication: COR PULMONALE CHRONIC
     Route: 048
  2. VIAGRA (SILDENAFIL CITRATE) [Concomitant]

REACTIONS (1)
  - Oedema [None]
